FAERS Safety Report 20224324 (Version 1)
Quarter: 2021Q4

REPORT INFORMATION
  Report Type: Spontaneous
  Country: GB (occurrence: GB)
  Receive Date: 20211223
  Receipt Date: 20211223
  Transmission Date: 20220303
  Serious: Yes (Death, Hospitalization, Other)
  Sender: FDA-Public Use
  Company Number: None

PATIENT
  Age: 15 Year
  Sex: Male

DRUGS (11)
  1. PHENYTOIN [Suspect]
     Active Substance: PHENYTOIN
     Dosage: UNK UNK, 2X/DAY
     Route: 048
     Dates: end: 2017
  2. PREDNISOLONE [Suspect]
     Active Substance: PREDNISOLONE
     Indication: Epilepsy
     Dosage: VERY HIGH DOSE FOR 28 DAYS
     Route: 048
     Dates: start: 201803, end: 201803
  3. BRIVIACT [Suspect]
     Active Substance: BRIVARACETAM
     Indication: Epilepsy
     Dosage: 15 MG
     Route: 048
     Dates: start: 201803
  4. BRIVIACT [Suspect]
     Active Substance: BRIVARACETAM
     Dosage: 10 MG
     Dates: end: 201806
  5. KEPPRA [Suspect]
     Active Substance: LEVETIRACETAM
     Indication: Epilepsy
     Dosage: AS ADD ON TO RUFINAMIDE
     Route: 048
  6. PERAMPANEL [Suspect]
     Active Substance: PERAMPANEL
     Indication: Epilepsy
     Dosage: UNK
     Route: 048
     Dates: start: 202002, end: 20200409
  7. RUFINAMIDE [Suspect]
     Active Substance: RUFINAMIDE
     Indication: Epilepsy
     Route: 048
  8. SULTHIAME [Suspect]
     Active Substance: SULTHIAME
     Indication: Epilepsy
     Dosage: 500 MG, 2X/DAY
     Route: 048
  9. ZONISAMIDE [Suspect]
     Active Substance: ZONISAMIDE
     Indication: Epilepsy
     Dosage: 100MG PM 50 MG AM
     Route: 048
     Dates: start: 2017, end: 20200410
  10. LACOSAMIDE [Suspect]
     Active Substance: LACOSAMIDE
     Indication: Epilepsy
     Dosage: 10MG OR 30MG
     Route: 048
  11. CARBAMAZEPINE [Suspect]
     Active Substance: CARBAMAZEPINE

REACTIONS (17)
  - Sudden unexplained death in epilepsy [Fatal]
  - Seizure cluster [Fatal]
  - Generalised onset non-motor seizure [Fatal]
  - Postictal paralysis [Fatal]
  - Hallucination, auditory [Fatal]
  - Psychotic disorder [Fatal]
  - Aggression [Fatal]
  - Aggression [Fatal]
  - Asthenia [Fatal]
  - Depressed mood [Fatal]
  - Fatigue [Fatal]
  - Anxiety [Fatal]
  - Emotional disorder [Fatal]
  - Crying [Fatal]
  - Fear [Fatal]
  - Body temperature fluctuation [Fatal]
  - Atonic seizures [Fatal]

NARRATIVE: CASE EVENT DATE: 20180301
